FAERS Safety Report 6943233-2 (Version None)
Quarter: 2010Q3

REPORT INFORMATION
  Report Type: 
  Country: None (occurrence: None)
  Receive Date: 20100816
  Receipt Date: 20100811
  Transmission Date: 20110219
  Serious: Yes (Life-Threatening)
  Sender: FDA-Public Use
  Company Number: 2009020822

PATIENT
  Age: 31 Year
  Sex: Female

DRUGS (5)
  1. HAEMOCOMPLETTAN (FIBRINOGEN CONCENTRATE (HUMAN)) LOT# 04068011C [Suspect]
     Indication: CAESAREAN SECTION
     Dosage: 2 G INTRAVENOUS
     Route: 042
     Dates: start: 20081127, end: 20081127
  2. HAEMOCOMPLETTAN (FIBRINOGEN CONCENTRATE (HUMAN)) LOT# 04068011C [Suspect]
     Indication: HAEMORRHAGE
     Dosage: 2 G INTRAVENOUS
     Route: 042
     Dates: start: 20081127, end: 20081127
  3. RED BLOOD CELLS [Concomitant]
  4. PLASMA [Concomitant]
  5. PLATELETS [Concomitant]

REACTIONS (3)
  - ACUTE PULMONARY OEDEMA [None]
  - ACUTE RESPIRATORY DISTRESS SYNDROME [None]
  - FLUID OVERLOAD [None]
